FAERS Safety Report 9321365 (Version 2)
Quarter: 2013Q2

REPORT INFORMATION
  Report Type: Spontaneous
  Country: JP (occurrence: JP)
  Receive Date: 20130531
  Receipt Date: 20130607
  Transmission Date: 20140414
  Serious: Yes (Other)
  Sender: FDA-Public Use
  Company Number: JP-PFIZER INC-2013165806

PATIENT
  Age: 77 Year
  Sex: Female

DRUGS (1)
  1. CELECOX [Suspect]
     Indication: ARTHRITIS
     Dosage: 100 MG, 2X/DAY
     Route: 048
     Dates: start: 20130521

REACTIONS (2)
  - Urinary retention [Unknown]
  - Dehydration [Recovered/Resolved]
